FAERS Safety Report 6057831-4 (Version None)
Quarter: 2009Q1

REPORT INFORMATION
  Report Type: 
  Country: None (occurrence: None)
  Receive Date: 20090129
  Receipt Date: 20090121
  Transmission Date: 20090719
  Serious: Yes (Death, Hospitalization)
  Sender: FDA-Public Use
  Company Number: US-GILEAD-2008-0019432

PATIENT
  Sex: Female
  Weight: 118.04 kg

DRUGS (13)
  1. LETAIRIS [Suspect]
     Indication: PULMONARY ARTERIAL HYPERTENSION
     Route: 048
     Dates: start: 20080919
  2. LASIX [Concomitant]
  3. ENALAPRIL MALEATE [Concomitant]
  4. FELODIPINE ER [Concomitant]
  5. HUMULIN 70/30 [Concomitant]
  6. LORAZEPAM [Concomitant]
  7. ALBUTEROL SULATE [Concomitant]
  8. DUONEB [Concomitant]
  9. SIMVASTATIN [Concomitant]
  10. ASPIRIN [Concomitant]
  11. EXCEDRIN [Concomitant]
  12. HYDROMORPHONE HCL [Concomitant]
  13. TYLENOL W/ CODEINE [Concomitant]

REACTIONS (6)
  - CARDIAC FAILURE ACUTE [None]
  - CARDIAC FAILURE CONGESTIVE [None]
  - CHRONIC OBSTRUCTIVE PULMONARY DISEASE [None]
  - DIASTOLIC DYSFUNCTION [None]
  - FLUID OVERLOAD [None]
  - RESPIRATORY FAILURE [None]
